FAERS Safety Report 5677442-X (Version None)
Quarter: 2008Q1

REPORT INFORMATION
  Report Type: 
  Country: None (occurrence: None)
  Receive Date: 20080324
  Receipt Date: 20080314
  Transmission Date: 20080703
  Serious: Yes (Other)
  Sender: FDA-Public Use
  Company Number: US-JNJFOC-20080101665

PATIENT
  Sex: Male
  Weight: 86.18 kg

DRUGS (12)
  1. TOPAMAX [Suspect]
     Route: 048
  2. TOPAMAX [Suspect]
     Dosage: 2 TABLETS AT BEDTIME
     Route: 048
  3. TOPAMAX [Suspect]
     Indication: BIPOLAR DISORDER
     Route: 048
  4. LEXAPRO [Concomitant]
     Indication: DEPRESSION
     Route: 048
  5. LAMICTAL [Concomitant]
     Route: 048
  6. LISINOPRIL [Concomitant]
     Indication: CARDIAC DISORDER
     Route: 048
  7. METOPROLOL TARTRATE [Concomitant]
     Indication: MYOCARDIAL INFARCTION
     Route: 048
  8. GEODON [Concomitant]
     Indication: DRUG USE FOR UNKNOWN INDICATION
     Route: 048
  9. TEGRETOL-XR [Concomitant]
     Route: 048
  10. ASPIRIN [Concomitant]
     Indication: CARDIAC DISORDER
     Route: 048
  11. LOVAZA [Concomitant]
     Indication: CARDIAC DISORDER
  12. VYTORIN [Concomitant]
     Indication: CARDIAC DISORDER

REACTIONS (6)
  - DIZZINESS [None]
  - DYSGEUSIA [None]
  - FATIGUE [None]
  - MYOCARDIAL INFARCTION [None]
  - NEPHROLITHIASIS [None]
  - PAROSMIA [None]
